FAERS Safety Report 7400419-0 (Version None)
Quarter: 2011Q2

REPORT INFORMATION
  Report Type: 
  Country: None (occurrence: None)
  Receive Date: 20110407
  Receipt Date: 20110328
  Transmission Date: 20111010
  Serious: Yes (Hospitalization)
  Sender: FDA-Public Use
  Company Number: JP-JNJFOC-20110311693

PATIENT
  Sex: Female
  Weight: 55 kg

DRUGS (6)
  1. FOLIC ACID [Concomitant]
     Indication: PROPHYLAXIS
     Route: 048
  2. TAKEPRON [Concomitant]
     Indication: GASTROINTESTINAL DISORDER THERAPY
     Route: 048
  3. GOLIMUMAB [Suspect]
     Indication: RHEUMATOID ARTHRITIS
     Route: 058
  4. RHEUMATREX [Suspect]
     Indication: RHEUMATOID ARTHRITIS
     Route: 048
  5. RHEUMATREX [Suspect]
     Route: 048
  6. CELECOX [Concomitant]
     Indication: RHEUMATOID ARTHRITIS
     Route: 048

REACTIONS (1)
  - PYELONEPHRITIS [None]
